FAERS Safety Report 4916693-6 (Version None)
Quarter: 2006Q1

REPORT INFORMATION
  Report Type: 
  Country: None (occurrence: None)
  Receive Date: 20060113
  Receipt Date: 20051012
  Transmission Date: 20060701
  Serious: No
  Sender: FDA-Public Use
  Company Number: 2005SP003478

PATIENT
  Age: 60 Year
  Sex: Male
  Weight: 78.0187 kg

DRUGS (3)
  1. LUNESTA [Suspect]
     Indication: INSOMNIA
     Dosage: 2 MG;HS;ORAL
     Route: 048
     Dates: start: 20050901, end: 20050901
  2. RITALIN [Concomitant]
  3. WELLBUTRIN [Concomitant]

REACTIONS (1)
  - INSOMNIA [None]
